FAERS Safety Report 20887097 (Version 3)
Quarter: 2022Q4

REPORT INFORMATION
  Report Type: Spontaneous
  Country: DK (occurrence: DK)
  Receive Date: 20220528
  Receipt Date: 20221110
  Transmission Date: 20230113
  Serious: Yes (Hospitalization, Disabling, Other)
  Sender: FDA-Public Use
  Company Number: DK-BRISTOL-MYERS SQUIBB COMPANY-2022-044403

PATIENT
  Sex: Female

DRUGS (1)
  1. NIVOLUMAB [Suspect]
     Active Substance: NIVOLUMAB
     Indication: Malignant melanoma
     Dosage: DOSE : 240 MG (THOUGH PATIENT UNSURE);     FREQ : EVERY 4TH WEEK
     Route: 065
     Dates: start: 20200826, end: 20200923

REACTIONS (25)
  - Malaise [Unknown]
  - Dizziness [Unknown]
  - Dry eye [Unknown]
  - Drug hypersensitivity [Unknown]
  - Swelling [Unknown]
  - Syncope [Unknown]
  - Hypoaesthesia [Unknown]
  - Paralysis [Unknown]
  - Pneumonia [Unknown]
  - Skin disorder [Unknown]
  - Meningitis aseptic [Unknown]
  - Musculoskeletal stiffness [Unknown]
  - Headache [Unknown]
  - Taste disorder [Unknown]
  - Tinnitus [Unknown]
  - Vitiligo [Unknown]
  - Pigmentation disorder [Recovered/Resolved]
  - Visual impairment [Unknown]
  - Dry mouth [Unknown]
  - Seizure [Unknown]
  - Angiolipoma [Unknown]
  - Weight decreased [Unknown]
  - Limb discomfort [Unknown]
  - Heart rate increased [Unknown]
  - Intentional product use issue [Unknown]

NARRATIVE: CASE EVENT DATE: 20200826
